FAERS Safety Report 5806259-8 (Version None)
Quarter: 2008Q3

REPORT INFORMATION
  Report Type: 
  Country: None (occurrence: None)
  Receive Date: 20080708
  Receipt Date: 20080623
  Transmission Date: 20090109
  Serious: Yes (Hospitalization)
  Sender: FDA-Public Use
  Company Number: 235973J08USA

PATIENT
  Age: 22 Year
  Sex: Female

DRUGS (3)
  1. REBIF [Suspect]
     Indication: MULTIPLE SCLEROSIS
     Dosage: 44 MCG, 3 IN 1 WEEKS, SUBCUTANEOUS
     Route: 058
     Dates: start: 20080129
  2. ORAL CONTRACEPTIVES (ORAL CONTRACEPTIVE NOS) [Concomitant]
  3. IBUPROFEN [Concomitant]

REACTIONS (1)
  - APPENDICITIS PERFORATED [None]
